FAERS Safety Report 4285325-5 (Version None)
Quarter: 2004Q1

REPORT INFORMATION
  Report Type: 
  Country: None (occurrence: None)
  Receive Date: 20040202
  Receipt Date: 20040120
  Transmission Date: 20041129
  Serious: Yes (Other)
  Sender: FDA-Public Use
  Company Number: 2004004170

PATIENT
  Age: 65 Year
  Sex: Female

DRUGS (3)
  1. SERTRALINE HCL [Suspect]
     Indication: DEPRESSION
     Dosage: 100 MG (DAILY), ORAL
     Route: 048
     Dates: start: 20020101
  2. AUGMENTIN '500' [Suspect]
     Indication: BRONCHITIS
     Dosage: (THREE TIMES A DAY), ORAL
     Route: 048
     Dates: start: 20031229, end: 20040104
  3. RANITIDINE HYDROCHLORIDE [Concomitant]

REACTIONS (2)
  - DRUG EFFECT DECREASED [None]
  - DRUG INTERACTION [None]
